FAERS Safety Report 20669694 (Version 1)
Quarter: 2022Q2

REPORT INFORMATION
  Report Type: Report from Study
  Country: BR (occurrence: BR)
  Receive Date: 20220404
  Receipt Date: 20220404
  Transmission Date: 20220720
  Serious: Yes (Hospitalization)
  Sender: FDA-Public Use
  Company Number: BR-NOVARTISPH-PHHY2016BR150500

PATIENT
  Sex: Male
  Weight: 57 kg

DRUGS (3)
  1. EXJADE [Suspect]
     Active Substance: DEFERASIROX
     Indication: Sickle cell anaemia
     Dosage: 2000 MG, QD (4 DISPERSIBLE TABLETS OF)
     Route: 048
  2. EXJADE [Suspect]
     Active Substance: DEFERASIROX
     Dosage: 750 MG, QD (1 DISPERSIBLE TABLET OF 250MG AND 1 OF 500MG)
     Route: 048
  3. DESFERRIOXAMIN [Concomitant]
     Indication: Iron overload
     Dosage: UNK
     Route: 065

REACTIONS (3)
  - Serum ferritin increased [Unknown]
  - Weight increased [Unknown]
  - General physical health deterioration [Unknown]
